FAERS Safety Report 11517834 (Version 1)
Quarter: 2015Q3

REPORT INFORMATION
  Report Type: Spontaneous
  Country: GB (occurrence: GB)
  Receive Date: 20150917
  Receipt Date: 20150917
  Transmission Date: 20151125
  Serious: Yes (Other)
  Sender: FDA-Public Use
  Company Number: GB-SA-2015SA137795

PATIENT
  Age: 19 Year
  Sex: Male

DRUGS (22)
  1. DOCUSATE [Concomitant]
     Active Substance: DOCUSATE
  2. MXL [Concomitant]
     Active Substance: MORPHINE SULFATE
  3. SALBUTAMOL [Concomitant]
     Active Substance: ALBUTEROL
  4. VITAMIN K [Concomitant]
     Active Substance: PHYTONADIONE
  5. AZITHROMYCIN [Concomitant]
     Active Substance: AZITHROMYCIN ANHYDROUS
  6. CHLORAMPHENICOL [Concomitant]
     Active Substance: CHLORAMPHENICOL
     Indication: CYSTIC FIBROSIS
     Route: 048
  7. TRANEXAMIC ACID. [Concomitant]
     Active Substance: TRANEXAMIC ACID
  8. RIFAMPICIN [Suspect]
     Active Substance: RIFAMPIN
     Indication: CYSTIC FIBROSIS
     Route: 048
  9. NOVORAPID [Concomitant]
     Active Substance: INSULIN ASPART
  10. OMEPRAZOLE. [Concomitant]
     Active Substance: OMEPRAZOLE
  11. SODIUM CHLORIDE. [Concomitant]
     Active Substance: SODIUM CHLORIDE
  12. CREON [Concomitant]
     Active Substance: PANCRELIPASE AMYLASE\PANCRELIPASE LIPASE\PANCRELIPASE PROTEASE
  13. COLECALCIFEROL [Concomitant]
     Active Substance: CHOLECALCIFEROL
  14. FERROUS SULFATE [Concomitant]
     Active Substance: FERROUS SULFATE\FERROUS SULFATE, DRIED
  15. ORAMORPH [Concomitant]
     Active Substance: MORPHINE SULFATE
  16. PARACETAMOL [Concomitant]
     Active Substance: ACETAMINOPHEN
  17. SENNA [Concomitant]
     Active Substance: SENNA LEAF\SENNOSIDES\SENNOSIDES A AND B
  18. SYMBICORT [Concomitant]
     Active Substance: BUDESONIDE\FORMOTEROL FUMARATE DIHYDRATE
  19. DORNASE ALFA [Concomitant]
     Active Substance: DORNASE ALFA
  20. FOLIC ACID. [Concomitant]
     Active Substance: FOLIC ACID
  21. MIRTAZAPINE. [Concomitant]
     Active Substance: MIRTAZAPINE
  22. PREDNISOLONE. [Concomitant]
     Active Substance: PREDNISOLONE

REACTIONS (2)
  - Unresponsive to stimuli [Recovered/Resolved]
  - Hypoglycaemia [Recovered/Resolved]
